FAERS Safety Report 4834711-0 (Version None)
Quarter: 2005Q4

REPORT INFORMATION
  Report Type: 
  Country: None (occurrence: None)
  Receive Date: 20051122
  Receipt Date: 20050705
  Transmission Date: 20060501
  Serious: No
  Sender: FDA-Public Use
  Company Number: US-BRISTOL-MYERS SQUIBB COMPANY-13023916

PATIENT
  Age: 56 Year
  Sex: Male
  Weight: 95 kg

DRUGS (10)
  1. PRAVACHOL [Suspect]
     Indication: BLOOD CHOLESTEROL INCREASED
  2. KALETRA [Concomitant]
  3. AGENERASE [Concomitant]
  4. ZIAGEN [Concomitant]
  5. PROVIGIL [Concomitant]
  6. STRATTERA [Concomitant]
  7. CYTOMEL [Concomitant]
  8. LEXIVA [Concomitant]
  9. WELLBUTRIN [Concomitant]
  10. AMBIEN [Concomitant]

REACTIONS (1)
  - URTICARIA [None]
